FAERS Safety Report 4580289-9 (Version None)
Quarter: 2005Q1

REPORT INFORMATION
  Report Type: 
  Country: None (occurrence: None)
  Receive Date: 20050127
  Receipt Date: 20041116
  Transmission Date: 20050727
  Serious: No
  Sender: FDA-Public Use
  Company Number: USA040464947

PATIENT
  Age: 12 Year
  Sex: Male
  Weight: 45 kg

DRUGS (3)
  1. STRATTERA [Suspect]
     Indication: ATTENTION DEFICIT/HYPERACTIVITY DISORDER
     Dosage: 80 MG DAY
     Dates: start: 20040501
  2. ADDERALL 10 [Concomitant]
  3. VITAMIN B COMPLEX CAP [Concomitant]

REACTIONS (7)
  - CHANGE IN SUSTAINED ATTENTION [None]
  - DISTURBANCE IN ATTENTION [None]
  - MONONUCLEOSIS SYNDROME [None]
  - NERVOUSNESS [None]
  - PRESCRIBED OVERDOSE [None]
  - SOMNOLENCE [None]
  - THROAT IRRITATION [None]
